FAERS Safety Report 11242904 (Version 1)
Quarter: 2015Q3

REPORT INFORMATION
  Report Type: Spontaneous
  Country: HR (occurrence: HR)
  Receive Date: 20150707
  Receipt Date: 20150707
  Transmission Date: 20151125
  Serious: Yes (Death, Hospitalization, Other)
  Sender: FDA-Public Use
  Company Number: HR-ALEMBIC PHARMACEUTICALS LIMITED-2015SCAL000364

PATIENT
  Age: 53 Year
  Sex: Male

DRUGS (2)
  1. QUETIAPINE FUMARATE. [Suspect]
     Active Substance: QUETIAPINE FUMARATE
     Indication: POST-TRAUMATIC STRESS DISORDER
     Dosage: UNK
  2. NITRAZEPAM [Suspect]
     Active Substance: NITRAZEPAM
     Indication: POST-TRAUMATIC STRESS DISORDER
     Dosage: UNK

REACTIONS (15)
  - Respiratory acidosis [Unknown]
  - Hypotonia [Unknown]
  - Suicide attempt [Fatal]
  - Fibrin D dimer increased [Unknown]
  - Pyrexia [Unknown]
  - Myoglobin blood increased [Unknown]
  - Haemodynamic instability [Unknown]
  - Loss of consciousness [Unknown]
  - Intentional overdose [Fatal]
  - Hyperglycaemia [Unknown]
  - Hepatic enzyme increased [Unknown]
  - Toxicity to various agents [Fatal]
  - Alcohol interaction [Fatal]
  - Renal failure [Unknown]
  - Blood creatine phosphokinase increased [Unknown]
